FAERS Safety Report 9492485 (Version 2)
Quarter: 2013Q3

REPORT INFORMATION
  Report Type: Spontaneous
  Country: IL (occurrence: IL)
  Receive Date: 20130830
  Receipt Date: 20130919
  Transmission Date: 20140515
  Serious: Yes (Hospitalization)
  Sender: FDA-Public Use
  Company Number: IL-ROCHE-1268324

PATIENT
  Age: 58 Year
  Sex: Male

DRUGS (10)
  1. ACTEMRA [Suspect]
     Indication: STILL^S DISEASE ADULT ONSET
     Route: 065
  2. MABTHERA [Concomitant]
     Indication: STILL^S DISEASE ADULT ONSET
  3. METHOTREXATE [Concomitant]
  4. SSZ [Concomitant]
  5. HYDROXYCHLOROQUINE [Concomitant]
  6. ARAVA [Concomitant]
  7. MINOCYCLINE [Concomitant]
  8. IMURAN [Concomitant]
  9. REMICADE [Concomitant]
  10. ENBREL [Concomitant]

REACTIONS (1)
  - Deep vein thrombosis [Recovering/Resolving]
